FAERS Safety Report 4476519-4 (Version None)
Quarter: 2004Q4

REPORT INFORMATION
  Report Type: 
  Country: None (occurrence: None)
  Receive Date: 20041013
  Receipt Date: 20040929
  Transmission Date: 20050328
  Serious: Yes (Death, Other)
  Sender: FDA-Public Use
  Company Number: USA040979695

PATIENT
  Sex: Female

DRUGS (1)
  1. INSULIN [Suspect]

REACTIONS (2)
  - CARCINOMA [None]
  - PHARMACEUTICAL PRODUCT COMPLAINT [None]
